FAERS Safety Report 12920903 (Version 1)
Quarter: 2016Q4

REPORT INFORMATION
  Report Type: Spontaneous
  Country: US (occurrence: US)
  Receive Date: 20161108
  Receipt Date: 20161108
  Transmission Date: 20170207
  Serious: No
  Sender: FDA-Public Use
  Company Number: None

PATIENT
  Age: 68 Year
  Sex: Female
  Weight: 48.99 kg

DRUGS (4)
  1. RECLAST [Suspect]
     Active Substance: ZOLEDRONIC ACID
     Indication: OSTEOPOROSIS
     Dosage: INFUSION?
  2. KLONOPIN [Concomitant]
     Active Substance: CLONAZEPAM
  3. PROTONIX [Concomitant]
     Active Substance: PANTOPRAZOLE SODIUM
  4. ALEVE [Concomitant]
     Active Substance: NAPROXEN SODIUM

REACTIONS (6)
  - Painful respiration [None]
  - Incorrect drug administration duration [None]
  - Musculoskeletal chest pain [None]
  - Pain in extremity [None]
  - Incorrect dose administered [None]
  - Bone pain [None]

NARRATIVE: CASE EVENT DATE: 20161004
